FAERS Safety Report 24779107 (Version 1)
Quarter: 2024Q4

REPORT INFORMATION
  Report Type: Spontaneous
  Country: US (occurrence: None)
  Receive Date: 20241226
  Receipt Date: 20241226
  Transmission Date: 20250114
  Serious: No
  Sender: Public
  Company Number: None

PATIENT
  Age: 61 Year
  Sex: Male

DRUGS (1)
  1. AMITRIPTYLINE HYDROCHLORIDE [Suspect]
     Active Substance: AMITRIPTYLINE HYDROCHLORIDE
     Indication: Depression
     Dosage: 2.00 UNK- UNKNOWN AT BEDTIME ORAL
     Route: 048
     Dates: start: 20240315, end: 20241016

REACTIONS (1)
  - Urinary retention [None]

NARRATIVE: CASE EVENT DATE: 20241016
